FAERS Safety Report 5669526-7 (Version None)
Quarter: 2008Q1

REPORT INFORMATION
  Report Type: 
  Country: None (occurrence: None)
  Receive Date: 20080317
  Receipt Date: 20080307
  Transmission Date: 20080703
  Serious: Yes (Hospitalization)
  Sender: FDA-Public Use
  Company Number: PHNU2008DE01251

PATIENT
  Sex: Female

DRUGS (3)
  1. RASILEZ [Suspect]
  2. ANGIOTENSIN II ANTAGONISTS [Concomitant]
  3. ACE INHIBITOR NOS [Concomitant]

REACTIONS (1)
  - RENAL FAILURE [None]
